FAERS Safety Report 16836361 (Version 1)
Quarter: 2019Q3

REPORT INFORMATION
  Report Type: Spontaneous
  Country: US (occurrence: US)
  Receive Date: 20190921
  Receipt Date: 20190921
  Transmission Date: 20191005
  Serious: No
  Sender: FDA-Public Use
  Company Number: US-009507513-1909USA002785

PATIENT
  Age: 84 Year
  Sex: Female

DRUGS (4)
  1. INVANZ [Suspect]
     Active Substance: ERTAPENEM SODIUM
     Indication: ARTHRITIS BACTERIAL
     Dosage: UNK
  2. INVANZ [Suspect]
     Active Substance: ERTAPENEM SODIUM
     Indication: CAPNOCYTOPHAGA SEPSIS
  3. VANCOMYCIN [Concomitant]
     Active Substance: VANCOMYCIN
     Indication: EVIDENCE BASED TREATMENT
     Dosage: UNK
  4. AMPICILLIN AND SULBACTAM [Concomitant]
     Active Substance: AMPICILLIN SODIUM\SULBACTAM SODIUM
     Indication: EVIDENCE BASED TREATMENT
     Dosage: UNK

REACTIONS (1)
  - Off label use [Unknown]
